FAERS Safety Report 20621913 (Version 1)
Quarter: 2022Q1

REPORT INFORMATION
  Report Type: Spontaneous
  Country: US (occurrence: US)
  Receive Date: 20220322
  Receipt Date: 20220322
  Transmission Date: 20220423
  Serious: Yes (Hospitalization)
  Sender: FDA-Public Use
  Company Number: US-PFIZER INC-202200402619

PATIENT
  Age: 62 Year
  Sex: Male

DRUGS (1)
  1. INLYTA [Suspect]
     Active Substance: AXITINIB
     Dosage: 5 MG, 2X/DAY
     Route: 048
     Dates: start: 202202

REACTIONS (7)
  - Fall [Unknown]
  - Fatigue [Unknown]
  - Pyrexia [Unknown]
  - Heart rate increased [Unknown]
  - Somnolence [Unknown]
  - Asthenia [Unknown]
  - Influenza [Unknown]
